FAERS Safety Report 20244177 (Version 1)
Quarter: 2021Q4

REPORT INFORMATION
  Report Type: Spontaneous
  Country: US (occurrence: US)
  Receive Date: 20211229
  Receipt Date: 20211229
  Transmission Date: 20220303
  Serious: Yes (Other)
  Sender: FDA-Public Use
  Company Number: US-COOPERSURGICAL, INC.-US-2021CPS002789

PATIENT
  Age: 48 Year
  Sex: Female
  Weight: 54.875 kg

DRUGS (2)
  1. PARAGARD T 380A [Suspect]
     Active Substance: COPPER
     Indication: Contraception
     Dosage: UNK
     Route: 015
     Dates: start: 201706, end: 20210909
  2. VITAMINS                           /00067501/ [Concomitant]
     Indication: Supplementation therapy
     Route: 065

REACTIONS (3)
  - Complication of device removal [Recovered/Resolved]
  - Device issue [Recovered/Resolved]
  - Complication associated with device [Recovered/Resolved]

NARRATIVE: CASE EVENT DATE: 20210719
